FAERS Safety Report 21927960 (Version 1)
Quarter: 2023Q1

REPORT INFORMATION
  Report Type: Spontaneous
  Country: GB (occurrence: GB)
  Receive Date: 20230130
  Receipt Date: 20230130
  Transmission Date: 20230418
  Serious: Yes (Hospitalization, Other)
  Sender: FDA-Public Use
  Company Number: GB-Accord-296436

PATIENT
  Sex: Male

DRUGS (8)
  1. ARIPIPRAZOLE [Suspect]
     Active Substance: ARIPIPRAZOLE
     Indication: Behavioural therapy
     Dosage: 7.5 MILLIGRAM, QD (8MG/DAY)
     Route: 065
  2. ARIPIPRAZOLE [Suspect]
     Active Substance: ARIPIPRAZOLE
     Dosage: 5 MILLIGRAM
     Route: 065
  3. RISPERIDONE [Suspect]
     Active Substance: RISPERIDONE
     Indication: Behavioural therapy
     Dosage: 2.5 MILLIGRAM
     Route: 065
  4. RISPERIDONE [Suspect]
     Active Substance: RISPERIDONE
     Dosage: 4 MILLIGRAM, QD (WEANING 2.5MG/DAY)
     Route: 065
  5. MELATONIN [Concomitant]
     Active Substance: MELATONIN
     Indication: Sleep disorder
     Dosage: 6 MILLIGRAM, PM (EVERY NIGHT)
     Route: 065
  6. VALPROATE SODIUM [Concomitant]
     Active Substance: VALPROATE SODIUM
     Indication: Epilepsy
     Dosage: 700 MILLIGRAM, QD (EVERY NIGHT.400MG/DAY-EVERY MORNING)
     Route: 065
  7. VALPROATE SODIUM [Concomitant]
     Active Substance: VALPROATE SODIUM
     Dosage: 400 MG EVERY MORNING/700 MG EVERY NIGHT)
     Route: 065
  8. VALPROATE SODIUM [Concomitant]
     Active Substance: VALPROATE SODIUM
     Dosage: 1100 MILLIGRAM
     Route: 065

REACTIONS (3)
  - Dopamine dysregulation syndrome [Recovered/Resolved]
  - Oculogyric crisis [Recovered/Resolved]
  - Parkinsonism [Recovered/Resolved]
